FAERS Safety Report 24873157 (Version 1)
Quarter: 2025Q1

REPORT INFORMATION
  Report Type: Spontaneous
  Country: US (occurrence: US)
  Receive Date: 20250122
  Receipt Date: 20250122
  Transmission Date: 20250409
  Serious: Yes (Death, Hospitalization, Other)
  Sender: AZURITY PHARMACEUTICALS
  Company Number: US-AZURITY PHARMACEUTICALS, INC.-AZR202501-000084

PATIENT
  Age: 49 Year
  Sex: Female

DRUGS (1)
  1. METHOTREXATE [Suspect]
     Active Substance: METHOTREXATE
     Indication: Psoriasis
     Route: 048

REACTIONS (9)
  - Right ventricular failure [Fatal]
  - Medication error [Fatal]
  - Respiratory failure [Fatal]
  - Acute lung injury [Fatal]
  - Renal failure [Unknown]
  - Pancytopenia [Unknown]
  - Hypotension [Unknown]
  - Infection [Unknown]
  - Ulcer [Unknown]

NARRATIVE: CASE EVENT DATE: 20230101
